FAERS Safety Report 13789983 (Version 6)
Quarter: 2017Q4

REPORT INFORMATION
  Report Type: Report from Study
  Country: JP (occurrence: JP)
  Receive Date: 20170725
  Receipt Date: 20171017
  Transmission Date: 20180320
  Serious: Yes (Hospitalization, Other)
  Sender: FDA-Public Use
  Company Number: JP-ASTELLAS-2017JP009371

PATIENT
  Age: 89 Year
  Sex: Male

DRUGS (39)
  1. IOMERON [Concomitant]
     Active Substance: IOMEPROL
     Indication: COMPUTERISED TOMOGRAM
     Dosage: UNK UNK, UNKNOWN FREQ.
     Route: 042
     Dates: start: 20170202, end: 20170202
  2. PLEVITA [Concomitant]
     Indication: SUBARACHNOID HAEMORRHAGE
  3. CARBAZOCHROME SODIUM SULFONATE [Concomitant]
     Active Substance: CARBAZOCHROME SODIUM SULFONATE
     Indication: TRAUMATIC INTRACRANIAL HAEMATOMA
     Dosage: UNK UNK, UNKNOWN FREQ.
     Route: 041
  4. URIEF [Concomitant]
     Active Substance: SILODOSIN
     Indication: BENIGN PROSTATIC HYPERPLASIA
     Route: 048
  5. MAGMITT [Concomitant]
     Active Substance: MAGNESIUM OXIDE
     Indication: CONSTIPATION
     Route: 048
  6. HARTMANN                           /00490001/ [Concomitant]
     Indication: SUBARACHNOID HAEMORRHAGE
  7. SOLYUGEN [Concomitant]
     Indication: SUBDURAL HAEMATOMA
  8. TRANEXAMIC ACID. [Concomitant]
     Active Substance: TRANEXAMIC ACID
     Indication: SUBARACHNOID HAEMORRHAGE
  9. MYOCOR [Concomitant]
     Active Substance: NITROGLYCERIN
     Indication: TRAUMATIC INTRACRANIAL HAEMATOMA
     Dosage: UNK UNK, UNKNOWN FREQ.
     Route: 041
  10. NIFLAN [Concomitant]
     Active Substance: PRANOPROFEN
     Indication: CATARACT
     Dosage: ADEQUATE DOSE, 4 TIMES DAILY
     Route: 031
  11. TRANEXAMIC ACID. [Concomitant]
     Active Substance: TRANEXAMIC ACID
     Indication: TRAUMATIC INTRACRANIAL HAEMATOMA
     Dosage: UNK UNK, UNKNOWN FREQ.
     Route: 041
  12. HARTMANN                           /00490001/ [Concomitant]
     Indication: SUBDURAL HAEMATOMA
  13. PLEVITA [Concomitant]
     Indication: SUBDURAL HAEMATOMA
  14. MYOCOR [Concomitant]
     Active Substance: NITROGLYCERIN
     Indication: SUBDURAL HAEMATOMA
  15. GLYCEREB [Concomitant]
     Indication: SUBARACHNOID HAEMORRHAGE
  16. OMEPRAZOLE                         /00661202/ [Concomitant]
     Indication: TRAUMATIC INTRACRANIAL HAEMATOMA
     Dosage: UNK UNK, UNKNOWN FREQ.
     Route: 041
  17. CLEAR BONE [Concomitant]
     Dosage: UNK UNK, UNKNOWN FREQ.
     Route: 042
     Dates: start: 20170522, end: 20170522
  18. DAIKENCHUTO [Concomitant]
     Active Substance: HERBALS
     Indication: CONSTIPATION
     Route: 048
     Dates: start: 20170522
  19. GLYCEREB [Concomitant]
     Indication: SUBDURAL HAEMATOMA
  20. BAYASPIRIN [Concomitant]
     Active Substance: ASPIRIN
     Indication: THROMBOSIS PROPHYLAXIS
     Route: 048
     Dates: end: 20170719
  21. CLEAR BONE [Concomitant]
     Indication: BONE SCAN
     Dosage: UNK UNK, UNKNOWN FREQ.
     Route: 042
     Dates: start: 20170202, end: 20170202
  22. CARBAZOCHROME SODIUM SULFONATE [Concomitant]
     Active Substance: CARBAZOCHROME SODIUM SULFONATE
     Indication: SUBARACHNOID HAEMORRHAGE
  23. MYOCOR [Concomitant]
     Active Substance: NITROGLYCERIN
     Indication: SUBARACHNOID HAEMORRHAGE
  24. OMEPRAZOLE                         /00661202/ [Concomitant]
     Indication: SUBARACHNOID HAEMORRHAGE
  25. E KEPPRA [Concomitant]
     Active Substance: LEVETIRACETAM
     Indication: CONVULSION PROPHYLAXIS
     Dosage: UNK UNK, UNKNOWN FREQ.
     Route: 041
     Dates: start: 20170719
  26. GONAX [Concomitant]
     Active Substance: DEGARELIX
     Indication: PROSTATE CANCER
     Route: 058
     Dates: start: 20160514
  27. NERIZA [Concomitant]
     Indication: HAEMORRHOIDS
     Dosage: ADEQUATE DOSE, TWICE DAILY
     Route: 062
  28. SOLYUGEN [Concomitant]
     Indication: SUBARACHNOID HAEMORRHAGE
  29. CARBAZOCHROME SODIUM SULFONATE [Concomitant]
     Active Substance: CARBAZOCHROME SODIUM SULFONATE
     Indication: SUBDURAL HAEMATOMA
  30. TRANEXAMIC ACID. [Concomitant]
     Active Substance: TRANEXAMIC ACID
     Indication: SUBDURAL HAEMATOMA
  31. GLYCEREB [Concomitant]
     Indication: TRAUMATIC INTRACRANIAL HAEMATOMA
     Dosage: UNK UNK, UNKNOWN FREQ.
     Route: 041
  32. OMEPRAZOLE                         /00661202/ [Concomitant]
     Indication: SUBDURAL HAEMATOMA
  33. LANSOPRAZOLE. [Concomitant]
     Active Substance: LANSOPRAZOLE
     Indication: GASTRITIS PROPHYLAXIS
     Dosage: UNK UNK, UNKNOWN FREQ.
     Route: 048
  34. ENZALUTAMIDE [Suspect]
     Active Substance: ENZALUTAMIDE
     Indication: HORMONE-REFRACTORY PROSTATE CANCER
     Route: 048
     Dates: start: 20170220, end: 20170719
  35. IOMERON [Concomitant]
     Active Substance: IOMEPROL
     Dosage: UNK UNK, UNKNOWN FREQ.
     Route: 042
     Dates: start: 20170522, end: 20170522
  36. HARTMANN                           /00490001/ [Concomitant]
     Indication: TRAUMATIC INTRACRANIAL HAEMATOMA
     Dosage: UNK UNK, UNKNOWN FREQ.
     Route: 041
  37. SOLYUGEN [Concomitant]
     Indication: TRAUMATIC INTRACRANIAL HAEMATOMA
     Dosage: UNK UNK, UNKNOWN FREQ.
     Route: 041
  38. PLEVITA [Concomitant]
     Indication: TRAUMATIC INTRACRANIAL HAEMATOMA
     Dosage: UNK UNK, UNKNOWN FREQ.
     Route: 041
  39. E KEPPRA [Concomitant]
     Active Substance: LEVETIRACETAM
     Indication: CONVULSION PROPHYLAXIS
     Dosage: UNK UNK, UNKNOWN FREQ.
     Route: 048
     Dates: start: 20170719

REACTIONS (8)
  - Haematoma [Not Recovered/Not Resolved]
  - Subdural haematoma [Recovering/Resolving]
  - Subarachnoid haemorrhage [Recovered/Resolved]
  - Pneumonia aspiration [Recovered/Resolved]
  - Cerebral haematoma [Recovering/Resolving]
  - Brain contusion [Recovered/Resolved with Sequelae]
  - Fall [Recovered/Resolved]
  - Epistaxis [Recovered/Resolved]

NARRATIVE: CASE EVENT DATE: 2017
